FAERS Safety Report 8652211 (Version 4)
Quarter: 2015Q3

REPORT INFORMATION
  Report Type: Report from Study
  Country: AU (occurrence: AU)
  Receive Date: 20120706
  Receipt Date: 20150917
  Transmission Date: 20151125
  Serious: Yes (Hospitalization, Other)
  Sender: FDA-Public Use
  Company Number: PHHY2012AU057196

PATIENT
  Age: 32 Year
  Sex: Male

DRUGS (1)
  1. CLOZARIL [Suspect]
     Active Substance: CLOZAPINE
     Dosage: 200 MG, QD
     Route: 065
     Dates: start: 20050422, end: 20120703

REACTIONS (4)
  - Waist circumference increased [Unknown]
  - Blood triglycerides increased [Unknown]
  - Cardiomyopathy [Unknown]
  - Cardiac disorder [Not Recovered/Not Resolved]

NARRATIVE: CASE EVENT DATE: 20120326
